FAERS Safety Report 10627573 (Version 3)
Quarter: 2014Q4

REPORT INFORMATION
  Report Type: Report from Study
  Country: GB (occurrence: GB)
  Receive Date: 20141205
  Receipt Date: 20141216
  Transmission Date: 20150529
  Serious: Yes (Hospitalization)
  Sender: FDA-Public Use
  Company Number: GB-ROCHE-1430152

PATIENT
  Age: 54 Year
  Sex: Female

DRUGS (10)
  1. TROSPIUM [Concomitant]
     Active Substance: TROSPIUM
     Route: 065
     Dates: start: 201408
  2. SENNA [Concomitant]
     Active Substance: SENNA LEAF\SENNOSIDES\SENNOSIDES A AND B
     Route: 065
     Dates: start: 201411
  3. GLYCERIN SUPPOSITORIES [Concomitant]
     Dosage: AS REQUIRED
     Route: 065
     Dates: start: 201411
  4. BEVACIZUMAB [Suspect]
     Active Substance: BEVACIZUMAB
     Dosage: DATE OF LAST DOSE PRIOR TO SAE: 10/JUN/2014
     Route: 065
     Dates: start: 20140605
  5. TRIMETHOPRIM. [Concomitant]
     Active Substance: TRIMETHOPRIM
     Route: 065
     Dates: start: 20141028
  6. PANTOPRAZOLE [Concomitant]
     Active Substance: PANTOPRAZOLE SODIUM
     Route: 065
     Dates: start: 201410
  7. PANTOPRAZOLE [Concomitant]
     Active Substance: PANTOPRAZOLE SODIUM
     Route: 065
     Dates: start: 201102
  8. TAMSULOSIN [Concomitant]
     Active Substance: TAMSULOSIN
  9. BEVACIZUMAB [Suspect]
     Active Substance: BEVACIZUMAB
     Indication: OVARIAN CANCER
     Dosage: LAST DOSE PRIOR TO SAE: 10/JUN/2014
     Route: 065
     Dates: start: 20130605
  10. PARACETAMOL [Concomitant]
     Active Substance: ACETAMINOPHEN
     Dosage: AS REQUIRED
     Route: 065
     Dates: start: 201408

REACTIONS (8)
  - Hydronephrosis [Recovered/Resolved with Sequelae]
  - Pyelonephritis [Recovered/Resolved with Sequelae]
  - Arthralgia [Not Recovered/Not Resolved]
  - Urinary tract infection [Recovered/Resolved with Sequelae]
  - Back pain [Recovered/Resolved with Sequelae]
  - Pain in extremity [Recovered/Resolved]
  - Dysuria [Recovered/Resolved with Sequelae]
  - Proteinuria [Recovered/Resolved]

NARRATIVE: CASE EVENT DATE: 201401
